FAERS Safety Report 24038681 (Version 1)
Quarter: 2024Q3

REPORT INFORMATION
  Report Type: Spontaneous
  Country: US (occurrence: US)
  Receive Date: 20240702
  Receipt Date: 20240702
  Transmission Date: 20241016
  Serious: Yes (Hospitalization, Other)
  Sender: AUROBINDO
  Company Number: US-AUROBINDO-AUR-APL-2024-031640

PATIENT
  Age: 77 Year
  Sex: Female

DRUGS (4)
  1. TIROFIBAN [Suspect]
     Active Substance: TIROFIBAN
     Indication: Antiplatelet therapy
     Dosage: 18-HOUR COURSE
     Route: 065
  2. ASPIRIN [Suspect]
     Active Substance: ASPIRIN
     Indication: Antiplatelet therapy
     Dosage: UNK
     Route: 065
  3. CANGRELOR [Suspect]
     Active Substance: CANGRELOR
     Indication: Vascular stent thrombosis
     Dosage: UNK
     Route: 065
  4. TICAGRELOR [Suspect]
     Active Substance: TICAGRELOR
     Indication: Antiplatelet therapy
     Dosage: UNK
     Route: 065

REACTIONS (3)
  - Pulmonary alveolar haemorrhage [Unknown]
  - Acute respiratory failure [Unknown]
  - Haemoptysis [Recovered/Resolved]
